FAERS Safety Report 13574941 (Version 4)
Quarter: 2017Q3

REPORT INFORMATION
  Report Type: Report from Study
  Country: US (occurrence: US)
  Receive Date: 20170523
  Receipt Date: 20170830
  Transmission Date: 20171127
  Serious: Yes (Hospitalization, Other)
  Sender: FDA-Public Use
  Company Number: US-BAXALTA-2017BLT004676

PATIENT
  Age: 4 Year
  Sex: Male
  Weight: 18.5 kg

DRUGS (20)
  1. VINCRISTINE [Suspect]
     Active Substance: VINCRISTINE
     Dosage: 1.1 MG, ONE DOSE
     Route: 040
     Dates: start: 20170514, end: 20170524
  2. RUXOLITINIB [Suspect]
     Active Substance: RUXOLITINIB
     Indication: ACUTE LYMPHOCYTIC LEUKAEMIA
     Dosage: 30 MG, 2X/DAY:BID (DAY 1-14)
     Route: 048
     Dates: start: 20170520
  3. THIOGUANINE [Suspect]
     Active Substance: THIOGUANINE
     Indication: ACUTE LYMPHOCYTIC LEUKAEMIA
     Dosage: 40 MG, WED-SUN
     Route: 048
     Dates: start: 20170520
  4. VINCRISTINE [Suspect]
     Active Substance: VINCRISTINE
     Indication: ACUTE LYMPHOCYTIC LEUKAEMIA
     Dosage: 1.2 MG,(GIVEN ON DAYS 1,8,15)
     Route: 037
     Dates: start: 20170412
  5. METHOTREXATE. [Suspect]
     Active Substance: METHOTREXATE
     Dosage: 30 MG, 2X/DAY:BID
     Route: 048
     Dates: start: 20170510
  6. DEXAMETHASONE. [Suspect]
     Active Substance: DEXAMETHASONE
     Dosage: 3.8 MG, 2X A DAY (DAYS 1-7)
     Route: 048
     Dates: start: 20170412
  7. PEGASPARGASE [Suspect]
     Active Substance: PEGASPARGASE
     Dosage: 1900 IU, ONE DOSE
     Route: 042
     Dates: start: 20170524, end: 20170524
  8. RUXOLITINIB [Suspect]
     Active Substance: RUXOLITINIB
     Dosage: 30 MG, 2X/DAY:BID (DAY 1-14)
     Route: 048
     Dates: start: 20170412
  9. METHOTREXATE. [Suspect]
     Active Substance: METHOTREXATE
     Indication: ACUTE LYMPHOCYTIC LEUKAEMIA
     Dosage: 12 MG, ONCE (DAY 1)
     Route: 037
     Dates: start: 20170412
  10. THIOGUANINE [Suspect]
     Active Substance: THIOGUANINE
     Dosage: 40 MG, WED-SUN
     Route: 048
     Dates: start: 20170510
  11. THIOGUANINE [Suspect]
     Active Substance: THIOGUANINE
     Dosage: 60 MG, MON-TUES
     Route: 048
     Dates: start: 20170510
  12. DEXAMETHASONE. [Suspect]
     Active Substance: DEXAMETHASONE
     Indication: ACUTE LYMPHOCYTIC LEUKAEMIA
     Dosage: 4 MG, 2X A DAY (DAYS 15-20)
     Route: 048
     Dates: start: 20170426
  13. CYCLOPHOSPHAMIDE. [Suspect]
     Active Substance: CYCLOPHOSPHAMIDE
     Indication: ACUTE LYMPHOCYTIC LEUKAEMIA
     Dosage: 250 MG, ONE DOSE
     Route: 042
     Dates: start: 20170510, end: 20170510
  14. METHOTREXATE. [Suspect]
     Active Substance: METHOTREXATE
     Dosage: 30 MG, 2X/DAY:BID
     Route: 048
     Dates: start: 20170517
  15. THIOGUANINE [Suspect]
     Active Substance: THIOGUANINE
     Dosage: UNK
     Dates: start: 20170520
  16. CYTARABINE. [Suspect]
     Active Substance: CYTARABINE
     Indication: ACUTE LYMPHOCYTIC LEUKAEMIA
     Dosage: 56 MG, 1X/DAY:QD
     Route: 058
     Dates: start: 20170520
  17. CYTARABINE. [Suspect]
     Active Substance: CYTARABINE
     Dosage: 56 MG, 1X/DAY:QD
     Route: 058
     Dates: start: 20170510
  18. PEGASPARGASE [Suspect]
     Active Substance: PEGASPARGASE
     Indication: ACUTE LYMPHOCYTIC LEUKAEMIA
     Dosage: 1975 IU, (DAY 4)
     Route: 042
     Dates: start: 20170415, end: 20170415
  19. DOXORUBICIN [Suspect]
     Active Substance: DOXORUBICIN
     Indication: ACUTE LYMPHOCYTIC LEUKAEMIA
     Dosage: 19 MG (DAYS 1, 8, 15)
     Route: 042
     Dates: start: 20170412
  20. DEXAMETHASONE. [Suspect]
     Active Substance: DEXAMETHASONE
     Dosage: 4 MG, 2X A DAY (DAYS 15-20)
     Route: 048
     Dates: start: 20170501

REACTIONS (1)
  - Sepsis [Recovered/Resolved]

NARRATIVE: CASE EVENT DATE: 20170528
